FAERS Safety Report 4411285-X (Version None)
Quarter: 2004Q3

REPORT INFORMATION
  Report Type: 
  Country: None (occurrence: None)
  Receive Date: 20040727
  Receipt Date: 20040720
  Transmission Date: 20050211
  Serious: Yes (Hospitalization)
  Sender: FDA-Public Use
  Company Number: TR-JNJFOC-20040705380

PATIENT
  Age: 1 Day
  Sex: Female
  Weight: 1.2 kg

DRUGS (1)
  1. IBUPROFEN [Suspect]
     Dosage: SEE IMAGE
     Route: 048

REACTIONS (2)
  - INTESTINAL PERFORATION [None]
  - NEONATAL DISORDER [None]
